FAERS Safety Report 13097224 (Version 1)
Quarter: 2017Q1

REPORT INFORMATION
  Report Type: Spontaneous
  Country: US (occurrence: US)
  Receive Date: 20170109
  Receipt Date: 20170109
  Transmission Date: 20170428
  Serious: Yes (Congenital Anomaly)
  Sender: FDA-Public Use
  Company Number: US-WARNER CHILCOTT, LLC-1061792

PATIENT
  Age: 1 Day
  Sex: Male
  Weight: 3.09 kg

DRUGS (1)
  1. LO LOESTRIN FE [Suspect]
     Active Substance: ETHINYL ESTRADIOL\NORETHINDRONE ACETATE
     Route: 064
     Dates: end: 201602

REACTIONS (4)
  - Intestinal malrotation [None]
  - Vomiting [None]
  - Volvulus [None]
  - Foetal exposure during pregnancy [None]
